FAERS Safety Report 5419434-1 (Version None)
Quarter: 2007Q3

REPORT INFORMATION
  Report Type: 
  Country: None (occurrence: None)
  Receive Date: 20070820
  Receipt Date: 20070808
  Transmission Date: 20080115
  Serious: Yes (Death)
  Sender: FDA-Public Use
  Company Number: B0480759A

PATIENT
  Age: 70 Year
  Sex: Male

DRUGS (20)
  1. PAROXETINE [Suspect]
     Indication: DRUG USE FOR UNKNOWN INDICATION
     Dosage: 1.5TAB IN THE MORNING
     Route: 048
  2. REQUIP [Suspect]
     Indication: DRUG USE FOR UNKNOWN INDICATION
     Dosage: 5MG FOUR TIMES PER DAY
     Route: 048
  3. ULTIVA [Suspect]
     Route: 042
     Dates: start: 20070718, end: 20070718
  4. CEBUTID [Suspect]
     Dosage: 50MG TWICE PER DAY
     Route: 048
     Dates: start: 20070606, end: 20070718
  5. COMTAN [Suspect]
     Indication: PARKINSON'S DISEASE
     Route: 048
  6. SINEMET [Suspect]
     Route: 048
  7. MODOPAR [Suspect]
     Dosage: 125MG SIX TIMES PER DAY
     Route: 048
  8. OMIX [Suspect]
     Dosage: .4MG PER DAY
     Route: 048
  9. IMOVANE [Suspect]
     Dosage: .5MG PER DAY
     Route: 048
  10. MOTILIUM [Suspect]
     Route: 048
  11. PERMIXON [Suspect]
     Route: 048
  12. XANAX [Suspect]
     Dosage: .5MG TWICE PER DAY
     Route: 048
     Dates: start: 20070717, end: 20070717
  13. INIPOMP [Suspect]
     Route: 048
  14. PROPOFOL [Suspect]
     Route: 042
     Dates: start: 20070718, end: 20070718
  15. ATROPINE [Suspect]
     Route: 042
     Dates: start: 20070718, end: 20070718
  16. LOXEN [Suspect]
     Route: 042
     Dates: start: 20070718, end: 20070718
  17. PERFALGAN [Suspect]
     Route: 042
     Dates: start: 20070718, end: 20070718
  18. PROFENID [Suspect]
     Dosage: 100MG SINGLE DOSE
     Route: 042
     Dates: start: 20070718, end: 20070718
  19. MORPHINE [Suspect]
     Route: 042
     Dates: start: 20070718, end: 20070718
  20. OXACILLIN [Suspect]
     Route: 042
     Dates: start: 20070718, end: 20070718

REACTIONS (4)
  - CEREBRAL HAEMATOMA [None]
  - CEREBRAL HAEMORRHAGE [None]
  - MYDRIASIS [None]
  - PUPILS UNEQUAL [None]
